FAERS Safety Report 6736336-9 (Version None)
Quarter: 2010Q2

REPORT INFORMATION
  Report Type: 
  Country: None (occurrence: None)
  Receive Date: 20100521
  Receipt Date: 20100401
  Transmission Date: 20101027
  Serious: No
  Sender: FDA-Public Use
  Company Number: US-BAYER-201018294NA

PATIENT
  Age: 87 Year
  Sex: Female

DRUGS (4)
  1. SOTALOL HCL [Suspect]
     Indication: DRUG USE FOR UNKNOWN INDICATION
  2. SYNTHROID [Suspect]
     Indication: DRUG USE FOR UNKNOWN INDICATION
  3. COUMADIN [Suspect]
     Indication: DRUG USE FOR UNKNOWN INDICATION
  4. PLAVIX [Suspect]
     Indication: DRUG USE FOR UNKNOWN INDICATION

REACTIONS (1)
  - MUSCULAR WEAKNESS [None]
